FAERS Safety Report 5341802-7 (Version None)
Quarter: 2007Q2

REPORT INFORMATION
  Report Type: 
  Country: None (occurrence: None)
  Receive Date: 20070601
  Receipt Date: 20070521
  Transmission Date: 20071010
  Serious: Yes (Other)
  Sender: FDA-Public Use
  Company Number: GB-JNJFOC-20070505276

PATIENT
  Age: 42 Year
  Sex: Female
  Weight: 67 kg

DRUGS (3)
  1. REMICADE [Suspect]
     Indication: CROHN'S DISEASE
     Route: 042
  2. DIHYDROCODEINE BITARTRATE INJ [Concomitant]
  3. PARACETAMOL [Concomitant]

REACTIONS (4)
  - CHEST DISCOMFORT [None]
  - FLUSHING [None]
  - HYPOTENSION [None]
  - PALPITATIONS [None]
